FAERS Safety Report 4710534-8 (Version None)
Quarter: 2005Q3

REPORT INFORMATION
  Report Type: 
  Country: None (occurrence: None)
  Receive Date: 20050707
  Receipt Date: 20050627
  Transmission Date: 20060218
  Serious: Yes (Hospitalization, Other)
  Sender: FDA-Public Use
  Company Number: 2005093335

PATIENT
  Age: 15 Year
  Sex: Female

DRUGS (2)
  1. ZITHROMAX [Suspect]
     Indication: SINUSITIS
     Dosage: ORAL,4-6 WEEKS AGO
     Route: 048
  2. FEMIGOA (ETHINYLESTRADIOL, LEVONORTESTREL) [Suspect]
     Indication: CONTRACEPTION
     Dosage: ORAL
     Route: 048

REACTIONS (3)
  - DRUG INTERACTION [None]
  - PANCREATITIS [None]
  - SINUSITIS [None]
